FAERS Safety Report 7998392-X (Version None)
Quarter: 2011Q4

REPORT INFORMATION
  Report Type: 
  Country: None (occurrence: None)
  Receive Date: 20111221
  Receipt Date: 20110916
  Transmission Date: 20120403
  Serious: No
  Sender: FDA-Public Use
  Company Number: US-GLAXOSMITHKLINE-A0944975A

PATIENT
  Age: 64 Year
  Sex: Female

DRUGS (5)
  1. LOVAZA [Suspect]
     Indication: BLOOD TRIGLYCERIDES INCREASED
     Dosage: 2MG TWICE PER DAY
     Route: 048
     Dates: start: 20110427
  2. BACLOFEN [Concomitant]
  3. CLONAZEPAM [Concomitant]
  4. CRESTOR [Suspect]
  5. CRESTOR [Concomitant]

REACTIONS (1)
  - URINE ODOUR ABNORMAL [None]
